FAERS Safety Report 8194404-1 (Version None)
Quarter: 2012Q1

REPORT INFORMATION
  Report Type: 
  Country: None (occurrence: None)
  Receive Date: 20120308
  Receipt Date: 20120302
  Transmission Date: 20120608
  Serious: Yes (Hospitalization)
  Sender: FDA-Public Use
  Company Number: US-ABBOTT-12P-163-0910808-00

PATIENT
  Sex: Female
  Weight: 59.02 kg

DRUGS (2)
  1. SYNTHROID [Suspect]
     Dates: start: 20120201
  2. SYNTHROID [Suspect]
     Indication: HYPOTHYROIDISM
     Dates: start: 20050101, end: 20120201

REACTIONS (8)
  - MALNUTRITION [None]
  - APPARENT DEATH [None]
  - DEHYDRATION [None]
  - BLOOD PRESSURE DECREASED [None]
  - THYROID DISORDER [None]
  - COELIAC DISEASE [None]
  - GASTROINTESTINAL MOTILITY DISORDER [None]
  - LOSS OF CONSCIOUSNESS [None]
